FAERS Safety Report 22388338 (Version 1)
Quarter: 2023Q2

REPORT INFORMATION
  Report Type: Spontaneous
  Country: ES (occurrence: ES)
  Receive Date: 20230531
  Receipt Date: 20230531
  Transmission Date: 20230722
  Serious: Yes (Hospitalization)
  Sender: FDA-Public Use
  Company Number: ES-ELI_LILLY_AND_COMPANY-ES202207013700

PATIENT
  Age: 69 Year
  Sex: Female

DRUGS (5)
  1. LOPERAMIDE HYDROCHLORIDE [Suspect]
     Active Substance: LOPERAMIDE HYDROCHLORIDE
     Indication: Diarrhoea
     Dosage: 1 DOSAGE FORM, UNKNOWN
     Route: 065
  2. LOPERAMIDE HYDROCHLORIDE [Suspect]
     Active Substance: LOPERAMIDE HYDROCHLORIDE
     Dosage: 1 DOSAGE FORM, UNKNOWN
     Route: 065
  3. ABEMACICLIB [Suspect]
     Active Substance: ABEMACICLIB
     Indication: Breast cancer metastatic
     Dosage: 150 MG, BID
     Route: 048
     Dates: start: 20220720
  4. ABEMACICLIB [Suspect]
     Active Substance: ABEMACICLIB
     Dosage: 150 MG, BID
     Route: 048
  5. AMBIFUL [Concomitant]
     Indication: Product used for unknown indication
     Dosage: UNK, UNKNOWN
     Route: 065

REACTIONS (27)
  - Respiratory tract infection [Recovering/Resolving]
  - Faeces discoloured [Not Recovered/Not Resolved]
  - Ageusia [Not Recovered/Not Resolved]
  - Discomfort [Unknown]
  - Mouth injury [Unknown]
  - Oral mucosal erythema [Not Recovered/Not Resolved]
  - Platelet count decreased [Unknown]
  - Faeces soft [Not Recovered/Not Resolved]
  - Oral pain [Not Recovered/Not Resolved]
  - Onychoclasis [Recovering/Resolving]
  - Alopecia [Recovering/Resolving]
  - Myalgia [Recovering/Resolving]
  - Dry skin [Recovered/Resolved]
  - Hair growth abnormal [Recovering/Resolving]
  - Dry throat [Unknown]
  - Decreased immune responsiveness [Recovering/Resolving]
  - Hypovitaminosis [Recovering/Resolving]
  - COVID-19 [Recovered/Resolved]
  - Mucosal dryness [Recovering/Resolving]
  - Abdominal distension [Unknown]
  - Pruritus [Not Recovered/Not Resolved]
  - Abdominal pain [Unknown]
  - Diarrhoea [Recovered/Resolved]
  - Constipation [Unknown]
  - Fatigue [Recovering/Resolving]
  - Gastrointestinal pain [Recovering/Resolving]
  - Diarrhoea [Recovering/Resolving]

NARRATIVE: CASE EVENT DATE: 20220725
